FAERS Safety Report 17061621 (Version 1)
Quarter: 2019Q4

REPORT INFORMATION
  Report Type: Spontaneous
  Country: US (occurrence: US)
  Receive Date: 20191121
  Receipt Date: 20191121
  Transmission Date: 20200122
  Serious: No
  Sender: FDA-Public Use
  Company Number: US-TEVA-2019-US-1138964

PATIENT
  Sex: Female

DRUGS (1)
  1. ALPRAZOLAM. [Suspect]
     Active Substance: ALPRAZOLAM
     Indication: ANXIETY
     Dosage: FORM STRENGTH: 0.25, UNIT NOT PROVIDED
     Route: 065

REACTIONS (4)
  - Gluten sensitivity [Unknown]
  - Weight decreased [Unknown]
  - Product substitution issue [Unknown]
  - Diarrhoea [Unknown]
